FAERS Safety Report 15215052 (Version 6)
Quarter: 2018Q4

REPORT INFORMATION
  Report Type: Spontaneous
  Country: IT (occurrence: IT)
  Receive Date: 20180730
  Receipt Date: 20181109
  Transmission Date: 20190204
  Serious: Yes (Other)
  Sender: FDA-Public Use
  Company Number: IT-PFIZER INC-2018299673

PATIENT
  Age: 56 Year
  Sex: Male

DRUGS (3)
  1. EPIRUBICIN HCL [Suspect]
     Active Substance: EPIRUBICIN HYDROCHLORIDE
     Indication: HEPATOCELLULAR CARCINOMA
     Dosage: 50 MG, UNK
     Route: 013
  2. EPIRUBICIN HCL [Suspect]
     Active Substance: EPIRUBICIN HYDROCHLORIDE
     Dosage: 25 MG, UNK
     Route: 013
  3. ETHIODIZED OIL [Concomitant]
     Active Substance: ETHIODIZED OIL
     Indication: HEPATOCELLULAR CARCINOMA
     Dosage: UNK
     Route: 013

REACTIONS (9)
  - Hepatic enzyme increased [Recovered/Resolved]
  - Alopecia [Unknown]
  - Pleural effusion [Recovered/Resolved]
  - Thrombocytopenia [Recovered/Resolved]
  - Fibrin D dimer increased [Recovered/Resolved]
  - Anaemia [Recovered/Resolved]
  - Pain [Recovered/Resolved]
  - Livedo reticularis [Recovered/Resolved]
  - Neutropenia [Recovered/Resolved]
